FAERS Safety Report 25990934 (Version 1)
Quarter: 2025Q4

REPORT INFORMATION
  Report Type: Spontaneous
  Country: US (occurrence: US)
  Receive Date: 20251103
  Receipt Date: 20251103
  Transmission Date: 20260117
  Serious: No
  Sender: Kenvue
  Company Number: US-KENVUE-20251005382

PATIENT
  Age: 68 Year
  Sex: Female

DRUGS (1)
  1. WOMENS ROGAINE UNSCENTED [Suspect]
     Active Substance: MINOXIDIL
     Indication: Alopecia
     Dosage: USE A CERAMIC THAT LOOKS LIKE AN ASHTRAY IT^S WIDER AS A QUARTER AND AS HIGH AS A BABY FINGER FELT T
     Route: 061
     Dates: start: 202510

REACTIONS (2)
  - Application site pruritus [Unknown]
  - Overdose [Unknown]

NARRATIVE: CASE EVENT DATE: 20251001
